FAERS Safety Report 8906371 (Version 1)
Quarter: 2012Q4

REPORT INFORMATION
  Report Type: Spontaneous
  Country: US (occurrence: None)
  Receive Date: 20121108
  Receipt Date: 20121108
  Transmission Date: 20130627
  Serious: Yes (Hospitalization)
  Sender: FDA-Public Use
  Company Number: TPA2012A08706

PATIENT
  Age: 51 Year
  Sex: Female
  Weight: 68.04 kg

DRUGS (3)
  1. PREVACID [Suspect]
     Route: 048
  2. LEVOTHYROXINE [Suspect]
  3. VASOTEC [Concomitant]

REACTIONS (3)
  - Vomiting [None]
  - Dysstasia [None]
  - Rash [None]
